FAERS Safety Report 5814339-6 (Version None)
Quarter: 2008Q3

REPORT INFORMATION
  Report Type: 
  Country: None (occurrence: None)
  Receive Date: 20080715
  Receipt Date: 20080701
  Transmission Date: 20090109
  Serious: Yes (Death)
  Sender: FDA-Public Use
  Company Number: 080616-0000508

PATIENT
  Age: 9 Day
  Sex: Male

DRUGS (13)
  1. NEOPROFEN [Suspect]
     Indication: PATENT DUCTUS ARTERIOSUS
     Dosage: 10 MG/KG; IV; 5 MG/KG; IV; IV
     Route: 042
     Dates: start: 20080416, end: 20080416
  2. NEOPROFEN [Suspect]
     Indication: PATENT DUCTUS ARTERIOSUS
     Dosage: 10 MG/KG; IV; 5 MG/KG; IV; IV
     Route: 042
     Dates: start: 20080417, end: 20080418
  3. FLUCONAZOLE [Concomitant]
  4. CAFFEINE [Concomitant]
  5. VITAMIN A [Concomitant]
  6. DOPAMINE INFUSION [Concomitant]
  7. INSULIN HUMAN [Concomitant]
  8. FENTANYL INFUSION [Concomitant]
  9. TOTAL PARENTERAL NUTRITION AND LIPID INFUSION [Concomitant]
  10. AMPICILLIN [Concomitant]
  11. AMINO ACID PED [Concomitant]
  12. PHYTONADIONE [Concomitant]
  13. SODIUM BICARBONATE [Concomitant]

REACTIONS (5)
  - DISCOMFORT [None]
  - INTESTINAL PERFORATION [None]
  - NEONATAL HYPOTENSION [None]
  - SEPSIS NEONATAL [None]
  - URINE OUTPUT DECREASED [None]
